FAERS Safety Report 5087382-5 (Version None)
Quarter: 2006Q3

REPORT INFORMATION
  Report Type: 
  Country: None (occurrence: None)
  Receive Date: 20060824
  Receipt Date: 20060817
  Transmission Date: 20061208
  Serious: Yes (Hospitalization, Other)
  Sender: FDA-Public Use
  Company Number: FR-JNJFOC-20060504569

PATIENT
  Age: 57 Year
  Sex: Male
  Weight: 85 kg

DRUGS (11)
  1. REMICADE [Suspect]
     Route: 042
  2. REMICADE [Suspect]
     Route: 042
  3. REMICADE [Suspect]
     Route: 042
  4. REMICADE [Suspect]
     Route: 042
  5. REMICADE [Suspect]
     Indication: ANKYLOSING SPONDYLITIS
     Route: 042
  6. NEXIUM [Concomitant]
     Indication: ANKYLOSING SPONDYLITIS
     Route: 048
  7. APRANAX [Concomitant]
     Indication: ANKYLOSING SPONDYLITIS
     Route: 048
  8. METHOTREXATE [Concomitant]
     Indication: ANKYLOSING SPONDYLITIS
     Route: 048
  9. ALLOPURINOL [Concomitant]
     Indication: HYPERURICAEMIA
     Route: 048
  10. NEXIUM [Concomitant]
     Indication: PROPHYLAXIS
     Route: 048
  11. TENSTATEN [Concomitant]
     Indication: HYPERTENSION
     Route: 048

REACTIONS (3)
  - PRURITUS [None]
  - PUSTULAR PSORIASIS [None]
  - RASH MACULO-PAPULAR [None]
